FAERS Safety Report 4575241-3 (Version None)
Quarter: 2005Q1

REPORT INFORMATION
  Report Type: 
  Country: None (occurrence: None)
  Receive Date: 20050118
  Receipt Date: 20040426
  Transmission Date: 20050727
  Serious: Yes (Hospitalization, Other)
  Sender: FDA-Public Use
  Company Number: HQWYE644329APR04

PATIENT
  Sex: Female

DRUGS (3)
  1. PREMPRO [Suspect]
     Indication: HORMONE REPLACEMENT THERAPY
     Dosage: ORAL
     Route: 048
     Dates: start: 19960522, end: 20010901
  2. PREMARIN [Suspect]
     Indication: OESTROGEN REPLACEMENT THERAPY
     Dosage: 0.625 MG; ORAL
     Route: 048
     Dates: start: 19930607, end: 19960522
  3. PROVERA [Suspect]
     Dosage: 10 MG
     Dates: start: 19901101, end: 19960522

REACTIONS (1)
  - BREAST CANCER [None]
